FAERS Safety Report 5244410-1 (Version None)
Quarter: 2007Q1

REPORT INFORMATION
  Report Type: 
  Country: None (occurrence: None)
  Receive Date: 20070222
  Receipt Date: 20070210
  Transmission Date: 20070707
  Serious: Yes (Hospitalization, Other)
  Sender: FDA-Public Use
  Company Number: US-PFIZER INC-2007001107

PATIENT
  Sex: Female
  Weight: 86.6 kg

DRUGS (5)
  1. CHANTIX [Suspect]
     Indication: SMOKER
     Dates: start: 20061129, end: 20061221
  2. ACETYLSALICYLIC ACID SRT [Concomitant]
     Dosage: DAILY DOSE:81MG
  3. LEXAPRO [Concomitant]
     Dosage: DAILY DOSE:10MG
  4. LIPITOR [Concomitant]
     Dosage: DAILY DOSE:20MG
  5. QUINAPRIL AND HYDROCHLOROTHIAZIDE [Concomitant]
     Dosage: TEXT:20/12.5 MG

REACTIONS (5)
  - CARDIAC FAILURE CONGESTIVE [None]
  - CHEST PAIN [None]
  - DYSPNOEA [None]
  - OEDEMA [None]
  - WEIGHT INCREASED [None]
